FAERS Safety Report 13312679 (Version 2)
Quarter: 2017Q1

REPORT INFORMATION
  Report Type: Spontaneous
  Country: DZ (occurrence: DZ)
  Receive Date: 20170309
  Receipt Date: 20170327
  Transmission Date: 20170428
  Serious: Yes (Other)
  Sender: FDA-Public Use
  Company Number: DZ-EMD SERONO-8146066

PATIENT
  Age: 33 Year
  Sex: Female
  Weight: 61 kg

DRUGS (3)
  1. GONAL-F [Suspect]
     Active Substance: FOLLITROPIN
     Indication: OVULATION INDUCTION
     Route: 058
     Dates: start: 20170224, end: 20170226
  2. GONAL-F [Suspect]
     Active Substance: FOLLITROPIN
     Dosage: DOSE REDUCED
     Route: 058
     Dates: start: 20170226
  3. CLOMID [Concomitant]
     Active Substance: CLOMIPHENE CITRATE
     Indication: OVULATION INDUCTION

REACTIONS (3)
  - Respiratory distress [Recovered/Resolved]
  - Chest pain [Recovered/Resolved]
  - Sense of oppression [Recovered/Resolved]

NARRATIVE: CASE EVENT DATE: 20170225
